FAERS Safety Report 5946665-4 (Version None)
Quarter: 2008Q4

REPORT INFORMATION
  Report Type: 
  Country: None (occurrence: None)
  Receive Date: 20081110
  Receipt Date: 20080723
  Transmission Date: 20090506
  Serious: No
  Sender: FDA-Public Use
  Company Number: A0739112A

PATIENT
  Age: 46 Year
  Sex: Female

DRUGS (1)
  1. ALTABAX [Suspect]
     Route: 045
     Dates: start: 20080621, end: 20080721

REACTIONS (1)
  - BURNING SENSATION [None]
